FAERS Safety Report 8774184 (Version 1)
Quarter: 2012Q4

REPORT INFORMATION
  Report Type: Report from Study
  Country: BR (occurrence: BR)
  Receive Date: 20120907
  Receipt Date: 20120907
  Transmission Date: 20130627
  Serious: Yes (Other)
  Sender: FDA-Public Use
  Company Number: BR-US-EMD SERONO, INC.-7159067

PATIENT
  Age: 57 Year
  Sex: Male

DRUGS (9)
  1. REBIF [Suspect]
     Indication: SECONDARY PROGRESSIVE MULTIPLE SCLEROSIS
     Dates: start: 20120426
  2. LOSARTAN [Concomitant]
     Indication: PRODUCT USED FOR UNKNOWN INDICATION
  3. TENSALIV (AMLODIPINE) [Concomitant]
     Indication: PRODUCT USED FOR UNKNOWN INDICATION
  4. STAVIGILE [Concomitant]
     Indication: PRODUCT USED FOR UNKNOWN INDICATION
  5. RETEMIC [Concomitant]
     Indication: PRODUCT USED FOR UNKNOWN INDICATION
  6. CLOPIDOGREL BISULFATE [Concomitant]
     Indication: PRODUCT USED FOR UNKNOWN INDICATION
  7. BACLOFEN [Concomitant]
     Indication: PRODUCT USED FOR UNKNOWN INDICATION
  8. RECONTER [Concomitant]
     Indication: PRODUCT USED FOR UNKNOWN INDICATION
  9. HIPERIUM [Concomitant]
     Indication: PRODUCT USED FOR UNKNOWN INDICATION

REACTIONS (7)
  - Urinary tract infection bacterial [Unknown]
  - Nasopharyngitis [Unknown]
  - Gait disturbance [Unknown]
  - Malaise [Unknown]
  - Tremor [Unknown]
  - Pyrexia [Unknown]
  - Fatigue [Unknown]
